FAERS Safety Report 7897420-X (Version None)
Quarter: 2011Q4

REPORT INFORMATION
  Report Type: 
  Country: None (occurrence: None)
  Receive Date: 20111107
  Receipt Date: 20111103
  Transmission Date: 20120403
  Serious: Yes (Other)
  Sender: FDA-Public Use
  Company Number: US-BAYER-2011-067000

PATIENT
  Age: 65 Year
  Sex: Male

DRUGS (4)
  1. NEXAVAR [Suspect]
     Dosage: 200 MG, 1 TABLET AM, 2 TABLETS  PM
  2. NEXAVAR [Suspect]
     Dosage: 400 MG, QD
     Dates: start: 20110801
  3. NEXAVAR [Suspect]
     Indication: HEPATIC NEOPLASM MALIGNANT
     Dosage: 200 MG, QD
     Route: 048
     Dates: start: 20110718
  4. NEXAVAR [Suspect]
     Dosage: 400 MG, BID
     Route: 048
     Dates: start: 20111009

REACTIONS (14)
  - CONSTIPATION [None]
  - VOMITING [None]
  - GLOSSODYNIA [None]
  - CHILLS [None]
  - NAUSEA [None]
  - ARTHRITIS [None]
  - DIARRHOEA [None]
  - FLATULENCE [None]
  - BLOOD PRESSURE INCREASED [None]
  - HYPERHIDROSIS [None]
  - SWOLLEN TONGUE [None]
  - DYSPHAGIA [None]
  - RASH [None]
  - FAECAL INCONTINENCE [None]
